FAERS Safety Report 9029913 (Version 6)
Quarter: 2014Q1

REPORT INFORMATION
  Report Type: Spontaneous
  Country: US (occurrence: US)
  Receive Date: 20130124
  Receipt Date: 20140116
  Transmission Date: 20141002
  Serious: Yes (Hospitalization, Other)
  Sender: FDA-Public Use
  Company Number: US-009507513-1301USA010921

PATIENT
  Sex: Female
  Weight: 44.5 kg

DRUGS (9)
  1. FOSAMAX [Suspect]
     Indication: OSTEOPOROSIS PROPHYLAXIS
     Dosage: 10 MG, QD
     Route: 048
     Dates: start: 20011015, end: 20040616
  2. FOSAMAX [Suspect]
     Dosage: 70 MG, QW
     Route: 048
     Dates: start: 20040616, end: 20080929
  3. FOSAMAX [Suspect]
     Dosage: 70 MG, QW
     Route: 048
     Dates: start: 20090413
  4. FOSAMAX [Suspect]
     Dosage: 5 MG, UNK
     Route: 048
  5. ALENDRONATE SODIUM [Suspect]
     Indication: OSTEOPOROSIS PROPHYLAXIS
     Dosage: 70 MG, QW
     Route: 048
     Dates: start: 20080221, end: 20080701
  6. ALENDRONATE SODIUM [Suspect]
     Dosage: 70 MG, QW
     Route: 048
     Dates: start: 20080929, end: 20090413
  7. VITAMINS (UNSPECIFIED) [Concomitant]
     Dosage: 1 DF, QD
     Dates: start: 1990
  8. CALCIUM (UNSPECIFIED) [Concomitant]
     Dosage: 1000 MG, QD
     Dates: start: 1990
  9. ESTROGENS (UNSPECIFIED) [Concomitant]
     Indication: OSTEOPOROSIS PROPHYLAXIS

REACTIONS (15)
  - Femur fracture [Unknown]
  - Intramedullary rod insertion [Unknown]
  - Hypothyroidism [Unknown]
  - Hysterectomy [Unknown]
  - Osteoporosis [Unknown]
  - Osteopenia [Unknown]
  - Fall [Unknown]
  - Osteochondroma [Unknown]
  - Muscle strain [Unknown]
  - Osteoarthritis [Unknown]
  - Fall [Unknown]
  - Discomfort [Unknown]
  - Hypercholesterolaemia [Unknown]
  - Vertigo positional [Unknown]
  - Gastrooesophageal reflux disease [Unknown]
